FAERS Safety Report 10368432 (Version 1)
Quarter: 2014Q3

REPORT INFORMATION
  Report Type: Spontaneous
  Country: JP (occurrence: JP)
  Receive Date: 20140807
  Receipt Date: 20140807
  Transmission Date: 20150326
  Serious: Yes (Hospitalization, Other)
  Sender: FDA-Public Use
  Company Number: PHHY2014JP096077

PATIENT
  Age: 73 Year
  Sex: Male
  Weight: 68 kg

DRUGS (3)
  1. DIOVAN [Suspect]
     Active Substance: VALSARTAN
     Indication: HYPERTENSION
     Dosage: UNK UKN, UNK
     Route: 048
  2. AMARYL [Concomitant]
     Active Substance: GLIMEPIRIDE
     Dosage: 0.5 MG, UNK
     Dates: end: 20140618
  3. ATELEC [Suspect]
     Active Substance: CILNIDIPINE
     Indication: HYPERTENSION
     Dosage: 10 MG, DAILY
     Route: 048
     Dates: start: 20050515

REACTIONS (9)
  - Renal impairment [Unknown]
  - Movement disorder [Unknown]
  - Red blood cell count decreased [Unknown]
  - Haemoglobin decreased [Unknown]
  - Glycosylated haemoglobin increased [Unknown]
  - Constipation [Unknown]
  - Hypoglycaemia [Unknown]
  - Haematocrit decreased [Unknown]
  - Cerebral infarction [Unknown]

NARRATIVE: CASE EVENT DATE: 200505
